FAERS Safety Report 8141012-4 (Version None)
Quarter: 2012Q1

REPORT INFORMATION
  Report Type: 
  Country: None (occurrence: None)
  Receive Date: 20120216
  Receipt Date: 20120209
  Transmission Date: 20120608
  Serious: Yes (Other)
  Sender: FDA-Public Use
  Company Number: US-ASTELLAS-2011US002827

PATIENT
  Sex: Female
  Weight: 69 kg

DRUGS (10)
  1. LISINOPRIL [Concomitant]
     Indication: PRODUCT USED FOR UNKNOWN INDICATION
     Dosage: UNK
     Route: 065
  2. KLOR-CON [Concomitant]
     Indication: PRODUCT USED FOR UNKNOWN INDICATION
     Dosage: UNK
     Route: 065
  3. LEVOTHYROXINE SODIUM [Concomitant]
     Indication: PRODUCT USED FOR UNKNOWN INDICATION
     Dosage: UNK
     Route: 065
  4. SYNTHROID [Concomitant]
     Indication: PRODUCT USED FOR UNKNOWN INDICATION
     Dosage: UNK
     Route: 065
  5. ERLOTINIB HYDROCHLORIDE [Suspect]
     Indication: LUNG CARCINOMA CELL TYPE UNSPECIFIED STAGE 0
     Dosage: 150 MG, UID/QD
     Route: 048
     Dates: start: 20100818
  6. ERLOTINIB HYDROCHLORIDE [Suspect]
     Dosage: 150 MG, UID/QD
     Route: 048
     Dates: start: 20090925
  7. VITAMIN D [Concomitant]
     Indication: PRODUCT USED FOR UNKNOWN INDICATION
     Dosage: UNK
     Route: 065
  8. IMODIUM A-D [Concomitant]
     Indication: PRODUCT USED FOR UNKNOWN INDICATION
     Dosage: UNK
     Route: 065
  9. HYDROCHLOROTHIAZIDE [Concomitant]
     Indication: PRODUCT USED FOR UNKNOWN INDICATION
     Dosage: UNK
     Route: 065
  10. MUCINEX [Concomitant]
     Indication: PRODUCT USED FOR UNKNOWN INDICATION
     Dosage: UNK
     Route: 065

REACTIONS (5)
  - RASH [None]
  - EYE PAIN [None]
  - EYE DISCHARGE [None]
  - DIARRHOEA [None]
  - VISUAL IMPAIRMENT [None]
